FAERS Safety Report 21238228 (Version 1)
Quarter: 2022Q3

REPORT INFORMATION
  Report Type: Spontaneous
  Country: US (occurrence: US)
  Receive Date: 20220822
  Receipt Date: 20220822
  Transmission Date: 20221027
  Serious: No
  Sender: FDA-Public Use
  Company Number: US-PHARMING-PHAUS2022000540

PATIENT

DRUGS (1)
  1. RUCONEST [Suspect]
     Active Substance: HUMAN C1-ESTERASE INHIBITOR
     Indication: Hereditary angioedema with normal C1 esterase inhibitor
     Dosage: UNK
     Route: 042
     Dates: start: 20171120

REACTIONS (6)
  - Migraine [Unknown]
  - Fatigue [Unknown]
  - Cough [Unknown]
  - Gastrointestinal disorder [Unknown]
  - Throat irritation [Unknown]
  - Headache [Unknown]
